FAERS Safety Report 6756092-8 (Version None)
Quarter: 2010Q2

REPORT INFORMATION
  Report Type: 
  Country: None (occurrence: None)
  Receive Date: 20100604
  Receipt Date: 20100526
  Transmission Date: 20101027
  Serious: Yes (Hospitalization, Other)
  Sender: FDA-Public Use
  Company Number: BR-PFIZER INC-2010066576

PATIENT
  Age: 21 Year
  Sex: Female
  Weight: 60 kg

DRUGS (2)
  1. DEPO-PROVERA [Suspect]
     Indication: CONTRACEPTION
     Dosage: 150 MG, UNK
     Route: 030
     Dates: start: 20091125
  2. PURAN T4 [Concomitant]
     Indication: HYPOTHYROIDISM
     Dosage: 50 MG, UNK
     Dates: start: 20080101

REACTIONS (21)
  - ALOPECIA [None]
  - APPLICATION SITE PAIN [None]
  - ARTHRALGIA [None]
  - BACK PAIN [None]
  - CONDITION AGGRAVATED [None]
  - DEPRESSION [None]
  - DRUG EXPOSURE VIA BREAST MILK [None]
  - HEADACHE [None]
  - HORMONE LEVEL ABNORMAL [None]
  - HYPOTHYROIDISM [None]
  - IMMUNOSUPPRESSION [None]
  - INJECTION SITE REACTION [None]
  - METRORRHAGIA [None]
  - MYALGIA [None]
  - OVARIAN CYST [None]
  - PAIN [None]
  - PELVIC PAIN [None]
  - SUPPRESSED LACTATION [None]
  - SWELLING [None]
  - SYSTEMIC LUPUS ERYTHEMATOSUS [None]
  - URINARY TRACT INFECTION [None]
